FAERS Safety Report 4417576-0 (Version None)
Quarter: 2004Q3

REPORT INFORMATION
  Report Type: 
  Country: None (occurrence: None)
  Receive Date: 20040803
  Receipt Date: 20040723
  Transmission Date: 20050211
  Serious: Yes (Hospitalization)
  Sender: FDA-Public Use
  Company Number: HQWYE409423JUL04

PATIENT
  Age: 38 Year
  Sex: Female

DRUGS (2)
  1. PREMARIN [Suspect]
     Indication: INFERTILITY
     Dosage: 0.625 MG 1X PER 1 DAY ORAL
     Route: 048
     Dates: start: 20020630
  2. DYDROGESTERONE (DYDROGESTERONE) [Concomitant]

REACTIONS (1)
  - HEPATITIS FULMINANT [None]
